FAERS Safety Report 4943224-7 (Version None)
Quarter: 2006Q1

REPORT INFORMATION
  Report Type: 
  Country: None (occurrence: None)
  Receive Date: 20060314
  Receipt Date: 20060303
  Transmission Date: 20060701
  Serious: Yes (Death, Hospitalization, Other)
  Sender: FDA-Public Use
  Company Number: US-MERCK-0603USA00787

PATIENT
  Age: 55 Year
  Sex: Male

DRUGS (1)
  1. VIOXX [Suspect]
     Route: 048
     Dates: start: 19990101, end: 20010101

REACTIONS (7)
  - ANOXIC ENCEPHALOPATHY [None]
  - DIABETES MELLITUS NON-INSULIN-DEPENDENT [None]
  - INJURY [None]
  - MALIGNANT HYPERTENSION [None]
  - MYOCARDIAL INFARCTION [None]
  - RESPIRATORY ARREST [None]
  - SLEEP APNOEA SYNDROME [None]
